FAERS Safety Report 8609832-7 (Version None)
Quarter: 2012Q3

REPORT INFORMATION
  Report Type: 
  Country: None (occurrence: None)
  Receive Date: 20120821
  Receipt Date: 20120621
  Transmission Date: 20120928
  Serious: No
  Sender: FDA-Public Use
  Company Number: US-009507513-1208USA001467

PATIENT

DRUGS (3)
  1. MIRALAX [Suspect]
     Indication: MEDICAL OBSERVATION
     Dosage: UNK, BID
     Route: 048
  2. MAGNESIA [MILK OF] [Concomitant]
     Indication: CONSTIPATION
     Dosage: UNK, UNKNOWN
     Route: 065
  3. MIRALAX [Suspect]
     Indication: CONSTIPATION
     Dosage: UNK, QD
     Route: 048

REACTIONS (3)
  - DRUG INEFFECTIVE [None]
  - OVERDOSE [None]
  - ASTHENIA [None]
